FAERS Safety Report 12118697 (Version 1)
Quarter: 2016Q1

REPORT INFORMATION
  Report Type: Spontaneous
  Country: US (occurrence: None)
  Receive Date: 20160225
  Receipt Date: 20160225
  Transmission Date: 20160526
  Serious: Yes (Life-Threatening, Hospitalization, Disabling, Other)
  Sender: FDA-Public Use
  Company Number: None

PATIENT
  Age: 82 Year
  Sex: Female

DRUGS (17)
  1. BABY ASPIRIN [Concomitant]
     Active Substance: ASPIRIN
  2. AVAPRO [Concomitant]
     Active Substance: IRBESARTAN
  3. CLONAZEPAM. [Concomitant]
     Active Substance: CLONAZEPAM
  4. CLONIDINE. [Concomitant]
     Active Substance: CLONIDINE
  5. PRACASIL [Concomitant]
  6. ALBUTEROL. [Concomitant]
     Active Substance: ALBUTEROL
  7. BUMEX [Concomitant]
     Active Substance: BUMETANIDE
  8. LEVOTHROID [Concomitant]
     Active Substance: LEVOTHYROXINE SODIUM
  9. COQNOL [Concomitant]
  10. LASIX [Concomitant]
     Active Substance: FUROSEMIDE
  11. NORVASC [Concomitant]
     Active Substance: AMLODIPINE BESYLATE
  12. VITAMINS [Concomitant]
     Active Substance: VITAMINS
  13. CARVEDILOL. [Concomitant]
     Active Substance: CARVEDILOL
  14. SYMBALTA [Concomitant]
  15. AVASTIN [Suspect]
     Active Substance: BEVACIZUMAB
     Indication: NEOVASCULAR AGE-RELATED MACULAR DEGENERATION
     Dosage: ONE INJECTION APPROXIMATELY EVERY SIX WEEKS AS ORDERED BY MD INTRAVITREAL INJECTION BY OPHTHALMOLOGIST
     Dates: start: 20121001, end: 20121001
  16. REQUIP [Concomitant]
     Active Substance: ROPINIROLE HYDROCHLORIDE
  17. MOBIC [Concomitant]
     Active Substance: MELOXICAM

REACTIONS (3)
  - Blindness [None]
  - Product contamination microbial [None]
  - Enterococcal infection [None]

NARRATIVE: CASE EVENT DATE: 20121001
